FAERS Safety Report 8431247-5 (Version None)
Quarter: 2012Q2

REPORT INFORMATION
  Report Type: 
  Country: None (occurrence: None)
  Receive Date: 20120613
  Receipt Date: 20120607
  Transmission Date: 20120825
  Serious: Yes (Other)
  Sender: FDA-Public Use
  Company Number: US-AMGEN-USASP2012035626

PATIENT
  Age: 61 Year
  Sex: Female

DRUGS (12)
  1. BUPROPION HCL [Concomitant]
  2. CLONAZEPAM [Concomitant]
  3. LOSARTAN [Concomitant]
  4. TRAZODONE HCL [Concomitant]
  5. VESICARE [Concomitant]
  6. VITAMIN D [Concomitant]
  7. PROLIA [Suspect]
     Indication: OSTEOPOROSIS POSTMENOPAUSAL
     Dates: start: 20120419
  8. ADVAIR DISKUS 100/50 [Concomitant]
  9. DEXILANT [Concomitant]
  10. GABAPENTIN [Concomitant]
  11. VYTORIN [Concomitant]
  12. CYMBALTA [Concomitant]

REACTIONS (5)
  - CYSTITIS [None]
  - DECREASED ACTIVITY [None]
  - BACK PAIN [None]
  - VOMITING [None]
  - MUSCLE SPASMS [None]
